FAERS Safety Report 13139309 (Version 1)
Quarter: 2017Q1

REPORT INFORMATION
  Report Type: Spontaneous
  Country: DE (occurrence: DE)
  Receive Date: 20170123
  Receipt Date: 20170123
  Transmission Date: 20170428
  Serious: Yes (Other)
  Sender: FDA-Public Use
  Company Number: DE-009507513-1701DEU009411

PATIENT
  Age: 18 Year
  Sex: Female

DRUGS (1)
  1. MK-7243 [Suspect]
     Active Substance: PHLEUM PRATENSE POLLEN
     Dosage: 75000 SQ; UNKNOWN
     Route: 060
     Dates: start: 20170113, end: 20170113

REACTIONS (1)
  - Epiglottic oedema [Recovered/Resolved]

NARRATIVE: CASE EVENT DATE: 20170113
